FAERS Safety Report 14301140 (Version 2)
Quarter: 2017Q4

REPORT INFORMATION
  Report Type: Spontaneous
  Country: NO (occurrence: NO)
  Receive Date: 20171219
  Receipt Date: 20171231
  Transmission Date: 20180321
  Serious: Yes (Other)
  Sender: FDA-Public Use
  Company Number: NO-TEVA-2017-NO-833273

PATIENT
  Age: 72 Year
  Sex: Female

DRUGS (8)
  1. PREGABALIN. [Suspect]
     Active Substance: PREGABALIN
     Indication: PAIN
     Dosage: 450 MILLIGRAM DAILY;
     Route: 065
  2. PREGABALIN. [Suspect]
     Active Substance: PREGABALIN
     Dosage: 150 MILLIGRAM DAILY;
     Route: 065
  3. NALOXEGOL [Interacting]
     Active Substance: NALOXEGOL
     Indication: CONSTIPATION
     Route: 065
  4. ATORVASTATIN [Interacting]
     Active Substance: ATORVASTATIN
     Indication: BLOOD CHOLESTEROL INCREASED
     Dosage: 40 MILLIGRAM DAILY;
     Route: 065
  5. DICLOFENAC [Suspect]
     Active Substance: DICLOFENAC
     Indication: PAIN
     Dosage: 150 MILLIGRAM DAILY;
     Route: 065
  6. LANSOPRAZOLE. [Interacting]
     Active Substance: LANSOPRAZOLE
     Indication: DYSPEPSIA
     Dosage: 60 MILLIGRAM DAILY;
     Route: 065
  7. FENTANYL. [Suspect]
     Active Substance: FENTANYL
     Indication: PAIN
     Dosage: 1 DF=100UG/H FENTANYL PATCH
     Route: 062
  8. ASPIRIN. [Suspect]
     Active Substance: ASPIRIN
     Indication: TRANSIENT ISCHAEMIC ATTACK
     Dosage: 75 MILLIGRAM DAILY;
     Route: 065

REACTIONS (9)
  - Drug withdrawal syndrome [Unknown]
  - Impaired gastric emptying [Recovered/Resolved]
  - Sleep apnoea syndrome [Recovering/Resolving]
  - Drug interaction [Unknown]
  - Renal impairment [Unknown]
  - Constipation [Recovering/Resolving]
  - Somnolence [Recovered/Resolved]
  - Hyperhidrosis [Unknown]
  - Dyspepsia [Unknown]
